FAERS Safety Report 4315250-2 (Version None)
Quarter: 2004Q1

REPORT INFORMATION
  Report Type: 
  Country: None (occurrence: None)
  Receive Date: 20040311
  Receipt Date: 20040302
  Transmission Date: 20041129
  Serious: Yes (Hospitalization, Other)
  Sender: FDA-Public Use
  Company Number: US-BRISTOL-MYERS SQUIBB COMPANY-12521639

PATIENT
  Age: 64 Year
  Sex: Male
  Weight: 77 kg

DRUGS (2)
  1. CISPLATIN [Suspect]
     Indication: MESOTHELIOMA
     Dosage: INITIAL DOSE: 21-OCT-2003
     Route: 042
     Dates: start: 20040113, end: 20040113
  2. PEMETREXED DISODIUM [Suspect]
     Indication: MESOTHELIOMA
     Dosage: INITIAL DOSE: 21-OCT-2003
     Route: 042
     Dates: start: 20040113, end: 20040113

REACTIONS (4)
  - BLOOD MAGNESIUM DECREASED [None]
  - CONVULSION [None]
  - MENTAL STATUS CHANGES [None]
  - PANCYTOPENIA [None]
